FAERS Safety Report 9972121 (Version 1)
Quarter: 2014Q1

REPORT INFORMATION
  Report Type: Spontaneous
  Country: FR (occurrence: None)
  Receive Date: 20140304
  Receipt Date: 20140304
  Transmission Date: 20141002
  Serious: Yes (Hospitalization)
  Sender: FDA-Public Use
  Company Number: FK201400665

PATIENT
  Age: 58 Year
  Sex: Male

DRUGS (7)
  1. IRINOTECAN [Suspect]
     Indication: RECTAL CANCER
     Dates: start: 201311, end: 20140121
  2. ELVORINE [Suspect]
     Indication: RECTAL CANCER
     Route: 042
     Dates: start: 20140121, end: 20140121
  3. APREPITANT [Concomitant]
  4. DEXAMETHASONE [Concomitant]
  5. ONDANSETRON [Concomitant]
  6. OXALIPLATIN [Concomitant]
  7. ATROPINE [Concomitant]

REACTIONS (3)
  - Urticaria [None]
  - Dysphagia [None]
  - Infusion related reaction [None]
